FAERS Safety Report 4454940-8 (Version None)
Quarter: 2004Q3

REPORT INFORMATION
  Report Type: 
  Country: None (occurrence: None)
  Receive Date: 20040921
  Receipt Date: 20040909
  Transmission Date: 20050211
  Serious: Yes (Hospitalization)
  Sender: FDA-Public Use
  Company Number: DE-BRISTOL-MYERS SQUIBB COMPANY-12697561

PATIENT
  Age: 66 Year
  Sex: Female
  Weight: 75 kg

DRUGS (1)
  1. NYSTATIN [Suspect]
     Route: 048

REACTIONS (1)
  - LINEAR IGA DISEASE [None]
